FAERS Safety Report 11706734 (Version 1)
Quarter: 2015Q4

REPORT INFORMATION
  Report Type: Spontaneous
  Country: US (occurrence: US)
  Receive Date: 20151106
  Receipt Date: 20151106
  Transmission Date: 20160304
  Serious: No
  Sender: FDA-Public Use
  Company Number: US-WATSON-2015-15852

PATIENT
  Age: 76 Year
  Sex: Male

DRUGS (2)
  1. ANDRODERM [Suspect]
     Active Substance: TESTOSTERONE
     Dosage: 4 MG, DAILY
     Route: 062
     Dates: start: 2005
  2. ANDRODERM [Suspect]
     Active Substance: TESTOSTERONE
     Indication: BLOOD TESTOSTERONE DECREASED
     Dosage: 4 MG, DAILY
     Route: 062
     Dates: start: 20150501, end: 20150707

REACTIONS (3)
  - Drug dose omission [Unknown]
  - Urticaria [Recovered/Resolved]
  - Product quality issue [None]

NARRATIVE: CASE EVENT DATE: 20150615
